FAERS Safety Report 21534514 (Version 2)
Quarter: 2022Q4

REPORT INFORMATION
  Report Type: Spontaneous
  Country: LT (occurrence: LT)
  Receive Date: 20221101
  Receipt Date: 20221124
  Transmission Date: 20230113
  Serious: Yes (Life-Threatening, Other)
  Sender: FDA-Public Use
  Company Number: LT-MLMSERVICE-20221018-3868705-1

PATIENT
  Age: 15 Year
  Sex: Male

DRUGS (8)
  1. DEXAMETHASONE [Suspect]
     Active Substance: DEXAMETHASONE
     Indication: B precursor type acute leukaemia
     Dosage: INDUCTION AND CONSOLIDATION
     Route: 065
     Dates: start: 2020
  2. DAUNORUBICIN [Suspect]
     Active Substance: DAUNORUBICIN
     Indication: B precursor type acute leukaemia
     Dosage: INDUCTION
     Route: 065
     Dates: start: 2020
  3. METHOTREXATE [Suspect]
     Active Substance: METHOTREXATE
     Indication: B precursor type acute leukaemia
     Dosage: INDUCTION AND CONSOLIDATION
     Route: 037
     Dates: start: 2020
  4. PEGASPARGASE [Suspect]
     Active Substance: PEGASPARGASE
     Indication: B precursor type acute leukaemia
     Dosage: INDUCTION AND CONSOLIDATION
     Route: 065
     Dates: start: 2020
  5. VINCRISTINE [Suspect]
     Active Substance: VINCRISTINE
     Indication: B precursor type acute leukaemia
     Dosage: INDUCTION AND CONSOLIDATION
     Route: 065
     Dates: start: 2020
  6. MERCAPTOPURINE [Suspect]
     Active Substance: MERCAPTOPURINE
     Indication: B precursor type acute leukaemia
     Dosage: CONSOLIDATION
     Route: 065
     Dates: start: 2020
  7. CYCLOPHOSPHAMIDE [Suspect]
     Active Substance: CYCLOPHOSPHAMIDE
     Indication: B precursor type acute leukaemia
     Dosage: CONSOLIDATION
     Route: 065
     Dates: start: 2020
  8. CYTARABINE [Suspect]
     Active Substance: CYTARABINE
     Indication: B precursor type acute leukaemia
     Dosage: CONSOLIDATION
     Route: 065
     Dates: start: 2020

REACTIONS (10)
  - Multiple organ dysfunction syndrome [Unknown]
  - Renal impairment [Unknown]
  - Myocarditis [Unknown]
  - Cerebral venous sinus thrombosis [Unknown]
  - Generalised tonic-clonic seizure [Unknown]
  - Pancreatitis acute [Unknown]
  - Hepatotoxicity [Unknown]
  - Therapy partial responder [Unknown]
  - Malnutrition [Unknown]
  - Mixed anxiety and depressive disorder [Unknown]

NARRATIVE: CASE EVENT DATE: 20200101
